FAERS Safety Report 10463844 (Version 1)
Quarter: 2014Q3

REPORT INFORMATION
  Report Type: Spontaneous
  Country: IL (occurrence: IL)
  Receive Date: 20140919
  Receipt Date: 20140919
  Transmission Date: 20150326
  Serious: Yes (Other)
  Sender: FDA-Public Use
  Company Number: IL-TEVA-509411ISR

PATIENT
  Age: 3 Year
  Sex: Male

DRUGS (1)
  1. ACTIQ [Suspect]
     Active Substance: FENTANYL CITRATE
     Indication: PRODUCT USED FOR UNKNOWN INDICATION
     Dosage: COMPRESSED TABLET ON A HANDLE
     Route: 048

REACTIONS (2)
  - Coma [Recovered/Resolved]
  - Accidental exposure to product by child [Unknown]
